FAERS Safety Report 5592835-7 (Version None)
Quarter: 2008Q1

REPORT INFORMATION
  Report Type: 
  Country: None (occurrence: None)
  Receive Date: 20080116
  Receipt Date: 20080109
  Transmission Date: 20080703
  Serious: Yes (Hospitalization, Other)
  Sender: FDA-Public Use
  Company Number: PHRM2008FR00542

PATIENT
  Age: 64 Year
  Sex: Male
  Weight: 90 kg

DRUGS (14)
  1. FLUDARABINE PHOSPHATE [Concomitant]
     Dosage: 30 MG/M2
  2. BUSILVEX [Concomitant]
     Dosage: 0.80 MG/KG/6 H AT D-4 AND D-3
  3. THYMOGLOBULIN [Concomitant]
     Dosage: 2.5 MG/KG/D
  4. IMMUNE GLOBULIN INTRAVENOUS (HUMAN) [Concomitant]
     Indication: HYPOGAMMAGLOBULINAEMIA
     Dosage: 10 G/DAY
  5. ACUPAN [Suspect]
     Route: 042
     Dates: start: 20070714, end: 20070714
  6. METOCLOPRAMIDE [Suspect]
     Route: 042
     Dates: start: 20070714, end: 20070714
  7. INIPOMP [Concomitant]
     Route: 042
     Dates: start: 20070713, end: 20070809
  8. TRIFLUCAN [Interacting]
     Dosage: 400 MG/D
     Route: 048
     Dates: start: 20070706, end: 20070725
  9. VANCOMYCIN [Concomitant]
  10. ACYCLOVIR [Concomitant]
  11. CARVEDILOL [Concomitant]
  12. CELLCEPT [Concomitant]
  13. PROGRAF [Concomitant]
  14. SANDIMMUNE [Suspect]
     Indication: BONE MARROW TRANSPLANT
     Route: 042
     Dates: start: 20070706, end: 20070715

REACTIONS (19)
  - ACUTE PULMONARY OEDEMA [None]
  - AGITATION [None]
  - BLINDNESS CORTICAL [None]
  - CENTRAL VENOUS PRESSURE INCREASED [None]
  - DEHYDRATION [None]
  - DIABETES MELLITUS [None]
  - DISORIENTATION [None]
  - DRUG INTERACTION [None]
  - EJECTION FRACTION DECREASED [None]
  - FLUID OVERLOAD [None]
  - HAEMOLYTIC ANAEMIA [None]
  - HALLUCINATION, VISUAL [None]
  - HYPERTENSION [None]
  - LEUKOENCEPHALOPATHY [None]
  - PYRAMIDAL TRACT SYNDROME [None]
  - RALES [None]
  - RENAL FAILURE [None]
  - VENTRICULAR HYPOKINESIA [None]
  - WEIGHT INCREASED [None]
